FAERS Safety Report 5809111-7 (Version None)
Quarter: 2008Q3

REPORT INFORMATION
  Report Type: 
  Country: None (occurrence: None)
  Receive Date: 20080714
  Receipt Date: 20080703
  Transmission Date: 20090109
  Serious: Yes (Other)
  Sender: FDA-Public Use
  Company Number: BR-PFIZER INC-2008055790

PATIENT
  Sex: Male

DRUGS (1)
  1. ACCUPRIL [Suspect]
     Indication: HYPERTENSION
     Route: 048

REACTIONS (3)
  - DIABETES MELLITUS [None]
  - PROSTATIC DISORDER [None]
  - WEIGHT DECREASED [None]
